FAERS Safety Report 6386950-8 (Version None)
Quarter: 2009Q4

REPORT INFORMATION
  Report Type: 
  Country: None (occurrence: None)
  Receive Date: 20091002
  Receipt Date: 20090824
  Transmission Date: 20100525
  Serious: Yes (Hospitalization, Disabling, Other)
  Sender: FDA-Public Use
  Company Number: US-BAXTER-2009BH001342

PATIENT
  Age: 53 Year
  Sex: Female
  Weight: 77 kg

DRUGS (13)
  1. HEPARIN SODIUM INJECTION [Suspect]
     Indication: DEEP VEIN THROMBOSIS
     Route: 058
     Dates: start: 20070622, end: 20070701
  2. HEPARIN SODIUM INJECTION [Suspect]
     Indication: INTRAVENOUS CATHETER MANAGEMENT
     Route: 058
     Dates: start: 20070622, end: 20070701
  3. HEPARIN SODIUM INJECTION [Suspect]
     Route: 042
     Dates: start: 20070630, end: 20070701
  4. HEPARIN SODIUM INJECTION [Suspect]
     Route: 042
     Dates: start: 20070630, end: 20070701
  5. HEPARIN SODIUM INJECTION [Suspect]
     Route: 042
     Dates: start: 20070712, end: 20070712
  6. HEPARIN SODIUM INJECTION [Suspect]
     Route: 042
     Dates: start: 20070712, end: 20070712
  7. HEPARIN SODIUM INJECTION [Suspect]
     Route: 042
     Dates: start: 20070713, end: 20070713
  8. HEPARIN SODIUM INJECTION [Suspect]
     Route: 042
     Dates: start: 20070713, end: 20070713
  9. HEPARIN SODIUM INJECTION [Suspect]
     Route: 042
     Dates: start: 20070714, end: 20070714
  10. HEPARIN SODIUM INJECTION [Suspect]
     Route: 042
     Dates: start: 20070714, end: 20070714
  11. HEPARIN SODIUM 5,000 UNITS IN DEXTROSE 5% [Suspect]
     Indication: DEEP VEIN THROMBOSIS
     Route: 042
     Dates: start: 20070712, end: 20070714
  12. FISH OIL [Concomitant]
     Indication: DRUG USE FOR UNKNOWN INDICATION
     Route: 065
  13. GARLIC [Concomitant]
     Indication: DRUG USE FOR UNKNOWN INDICATION
     Route: 065

REACTIONS (14)
  - ABDOMINAL PAIN UPPER [None]
  - ASTHENIA [None]
  - CEREBROVASCULAR ACCIDENT [None]
  - DEEP VEIN THROMBOSIS [None]
  - DYSARTHRIA [None]
  - ERYTHEMA [None]
  - HEADACHE [None]
  - HEART RATE INCREASED [None]
  - HEPARIN-INDUCED THROMBOCYTOPENIA [None]
  - HYPERHIDROSIS [None]
  - HYPERSENSITIVITY [None]
  - INJECTION SITE IRRITATION [None]
  - NAUSEA [None]
  - OEDEMA PERIPHERAL [None]
